FAERS Safety Report 5945808-6 (Version None)
Quarter: 2008Q4

REPORT INFORMATION
  Report Type: 
  Country: None (occurrence: None)
  Receive Date: 20081104
  Receipt Date: 20081019
  Transmission Date: 20090506
  Serious: Yes (Other)
  Sender: FDA-Public Use
  Company Number: 1-16787301

PATIENT
  Age: 41 Year
  Sex: Male

DRUGS (4)
  1. METHYLPREDNISOLONE [Suspect]
     Indication: GLOMERULONEPHRITIS
     Dosage: 48 MG DAILY, ORAL
     Route: 048
  2. ACETYLSALICYLIC ACID (100 MG/DAY) [Concomitant]
  3. FUROSEMIDE (40 MG/DAY) [Concomitant]
  4. QUINAPRIL (10 MG/DAY) [Concomitant]

REACTIONS (12)
  - ATRIAL FIBRILLATION [None]
  - BLOOD CHOLESTEROL INCREASED [None]
  - BLOOD CREATININE INCREASED [None]
  - BLOOD POTASSIUM INCREASED [None]
  - BLOOD TRIGLYCERIDES INCREASED [None]
  - BLOOD UREA INCREASED [None]
  - CHEST PAIN [None]
  - HAEMOGLOBIN DECREASED [None]
  - LEFT VENTRICULAR HYPERTROPHY [None]
  - PALPITATIONS [None]
  - RETINOPATHY HYPERTENSIVE [None]
  - WHITE BLOOD CELL COUNT INCREASED [None]
